FAERS Safety Report 9736688 (Version 1)
Quarter: 2013Q4

REPORT INFORMATION
  Report Type: Spontaneous
  Country: US (occurrence: US)
  Receive Date: 20131206
  Receipt Date: 20131206
  Transmission Date: 20140711
  Serious: No
  Sender: FDA-Public Use
  Company Number: US-GILEAD-2009-0023487

PATIENT
  Sex: Female
  Weight: 109.77 kg

DRUGS (13)
  1. LETAIRIS [Suspect]
     Indication: PULMONARY ARTERIAL HYPERTENSION
     Route: 048
     Dates: start: 20080501
  2. LASIX [Concomitant]
  3. PREDNISONE [Concomitant]
  4. TRAMADOL [Concomitant]
  5. PERCOCET [Concomitant]
  6. LEFLUNOMIDE [Concomitant]
  7. SULFASALAZINE [Concomitant]
  8. PLAQUENIL [Concomitant]
  9. CITALOPRAM [Concomitant]
  10. IBUPROFEN [Concomitant]
  11. LEVOTHYROXINE [Concomitant]
  12. PRILOSEC OTC [Concomitant]
  13. POTASSIUM CHLORIDE [Concomitant]

REACTIONS (3)
  - Arthralgia [Unknown]
  - Local swelling [Unknown]
  - Weight increased [Unknown]
